FAERS Safety Report 8309688-6 (Version None)
Quarter: 2012Q2

REPORT INFORMATION
  Report Type: 
  Country: None (occurrence: None)
  Receive Date: 20120424
  Receipt Date: 20120409
  Transmission Date: 20120825
  Serious: Yes (Other)
  Sender: FDA-Public Use
  Company Number: 2012MA004742

PATIENT
  Age: 66 Year
  Sex: Male

DRUGS (5)
  1. CARBIDOPA AND LEVODOPA [Suspect]
     Indication: PARKINSON'S DISEASE
     Dosage: TID
  2. AMANTADINE HCL [Concomitant]
  3. SELEGILINE [Concomitant]
  4. BROMOCRIPTINE MESYLATE [Concomitant]
  5. BIPERIDEN HYDROCHLORIDE TAB [Concomitant]

REACTIONS (4)
  - CEREBRAL ATROPHY [None]
  - TACHYPNOEA [None]
  - TREMOR [None]
  - RESPIRATORY DISORDER [None]
